FAERS Safety Report 8308029-8 (Version None)
Quarter: 2012Q2

REPORT INFORMATION
  Report Type: 
  Country: None (occurrence: None)
  Receive Date: 20120419
  Receipt Date: 20120412
  Transmission Date: 20120825
  Serious: Yes (Life-Threatening, Hospitalization, Other)
  Sender: FDA-Public Use
  Company Number: ADR-2012-00719

PATIENT
  Age: 29 Year
  Sex: Male

DRUGS (1)
  1. BACLOFEN [Suspect]
     Dosage: SEE B5

REACTIONS (27)
  - HAEMOGLOBIN DECREASED [None]
  - PLATELET DISTRIBUTION WIDTH INCREASED [None]
  - PYREXIA [None]
  - DRUG WITHDRAWAL SYNDROME [None]
  - ALANINE AMINOTRANSFERASE INCREASED [None]
  - COMPLEX PARTIAL SEIZURES [None]
  - SERRATIA INFECTION [None]
  - INTERNATIONAL NORMALISED RATIO INCREASED [None]
  - BLOOD CHLORIDE DECREASED [None]
  - DISSEMINATED INTRAVASCULAR COAGULATION [None]
  - FEELING COLD [None]
  - ACTIVATED PARTIAL THROMBOPLASTIN TIME PROLONGED [None]
  - ASPARTATE AMINOTRANSFERASE INCREASED [None]
  - BLOOD CALCIUM INCREASED [None]
  - BLOOD GLUCOSE DECREASED [None]
  - PROTEIN TOTAL DECREASED [None]
  - ASTHENIA [None]
  - BILIRUBIN CONJUGATED INCREASED [None]
  - RED BLOOD CELL COUNT DECREASED [None]
  - MEAN PLATELET VOLUME INCREASED [None]
  - SEPTIC SHOCK [None]
  - BLOOD UREA INCREASED [None]
  - BLOOD SODIUM DECREASED [None]
  - CONVULSION [None]
  - BLOOD BILIRUBIN INCREASED [None]
  - HAEMATOCRIT DECREASED [None]
  - BLOOD ALBUMIN DECREASED [None]
